FAERS Safety Report 23923465 (Version 1)
Quarter: 2024Q2

REPORT INFORMATION
  Report Type: Spontaneous
  Country: CA (occurrence: None)
  Receive Date: 20240531
  Receipt Date: 20240531
  Transmission Date: 20240716
  Serious: Yes (Other)
  Sender: FDA-Public Use
  Company Number: CA-ROCHE-3571025

PATIENT
  Age: 52 Year
  Sex: Male

DRUGS (23)
  1. CAPECITABINE [Suspect]
     Active Substance: CAPECITABINE
     Indication: Pancreatic carcinoma metastatic
     Route: 065
  2. DOCETAXEL [Suspect]
     Active Substance: DOCETAXEL\DOCETAXEL ANHYDROUS
     Indication: Product used for unknown indication
     Route: 065
  3. GEMCITABINE [Suspect]
     Active Substance: GEMCITABINE
     Indication: Pancreatic carcinoma metastatic
     Route: 065
  4. KEYTRUDA [Suspect]
     Active Substance: PEMBROLIZUMAB
     Indication: Pancreatic carcinoma metastatic
     Route: 065
  5. LORBRENA [Suspect]
     Active Substance: LORLATINIB
     Indication: Pancreatic carcinoma metastatic
     Route: 065
  6. OXALIPLATIN [Suspect]
     Active Substance: OXALIPLATIN
     Indication: Pancreatic carcinoma metastatic
     Route: 065
  7. PEMETREXED [Suspect]
     Active Substance: PEMETREXED
     Indication: Pancreatic carcinoma metastatic
     Route: 065
  8. TRASTUZUMAB [Suspect]
     Active Substance: TRASTUZUMAB
     Indication: Pancreatic carcinoma metastatic
     Route: 065
  9. ALUNBRIG [Concomitant]
     Active Substance: BRIGATINIB
  10. CISPLATIN [Concomitant]
     Active Substance: CISPLATIN
     Route: 042
  11. ENHERTU [Concomitant]
     Active Substance: FAM-TRASTUZUMAB DERUXTECAN-NXKI
     Route: 042
  12. FLUOROURACIL [Concomitant]
     Active Substance: FLUOROURACIL
  13. LEUCOVORIN [Concomitant]
     Active Substance: LEUCOVORIN\LEUCOVORIN CALCIUM
  14. IRINOTECAN HYDROCHLORIDE [Concomitant]
     Active Substance: IRINOTECAN HYDROCHLORIDE
     Route: 042
  15. MITOMYCIN [Concomitant]
     Active Substance: MITOMYCIN
     Dosage: POWDER FOR?SOLUTION?INTRAVESICULAR
     Route: 065
  16. PACLITAXEL [Concomitant]
     Active Substance: PACLITAXEL
     Dosage: LIQUID?INTRAVENOUS
  17. BEVACIZUMAB [Concomitant]
     Active Substance: BEVACIZUMAB
  18. DEMCIZUMAB [Concomitant]
     Active Substance: DEMCIZUMAB
  19. AMILOMER [Concomitant]
     Active Substance: AMILOMER
  20. ENTRECTINIB [Concomitant]
     Active Substance: ENTRECTINIB
  21. LIPIODOL [Concomitant]
     Active Substance: ETHIODIZED OIL
  22. OSIMERTINIB [Concomitant]
     Active Substance: OSIMERTINIB
  23. PERTUZUMAB [Concomitant]
     Active Substance: PERTUZUMAB

REACTIONS (1)
  - Pancytopenia [Unknown]
